FAERS Safety Report 23781677 (Version 3)
Quarter: 2024Q4

REPORT INFORMATION
  Report Type: Spontaneous
  Country: US (occurrence: US)
  Receive Date: 20240425
  Receipt Date: 20241018
  Transmission Date: 20250115
  Serious: No
  Sender: UCB
  Company Number: US-UCBSA-2024007785

PATIENT
  Age: 37 Year
  Sex: Female
  Weight: 72 kg

DRUGS (1)
  1. BIMZELX [Suspect]
     Active Substance: BIMEKIZUMAB-BKZX
     Indication: Psoriasis
     Dosage: 320 MILLIGRAM, EV 4 WEEKS
     Route: 058
     Dates: start: 20201207, end: 20240311

REACTIONS (1)
  - Injection site swelling [Recovered/Resolved]

NARRATIVE: CASE EVENT DATE: 20240211
